FAERS Safety Report 9884333 (Version 2)
Quarter: 2014Q1

REPORT INFORMATION
  Report Type: Spontaneous
  Country: US (occurrence: US)
  Receive Date: 20140210
  Receipt Date: 20140210
  Transmission Date: 20141002
  Serious: No
  Sender: FDA-Public Use
  Company Number: US-ALLERGAN-1316194US

PATIENT
  Age: 41 Year
  Sex: Female

DRUGS (5)
  1. BOTOX COSMETIC [Suspect]
     Indication: SKIN WRINKLING
     Dosage: 19 UNITS, SINGLE
     Route: 030
     Dates: start: 20130731, end: 20130731
  2. BOTOX COSMETIC [Suspect]
     Indication: SKIN WRINKLING
     Dosage: 8 UNITS, UNK
     Route: 030
     Dates: start: 20130731, end: 20130731
  3. BOTOX COSMETIC [Suspect]
     Indication: SKIN WRINKLING
     Dosage: 16 UNITS, UNK
     Route: 030
     Dates: start: 20130731, end: 20130731
  4. BOTOX COSMETIC [Suspect]
     Indication: SKIN WRINKLING
     Dosage: 2 UNITS, UNK
     Route: 030
     Dates: start: 20130731, end: 20130731
  5. BOTOX COSMETIC [Suspect]
     Dosage: UNK
     Route: 030

REACTIONS (2)
  - Off label use [Unknown]
  - Therapeutic response decreased [Unknown]
